FAERS Safety Report 21462309 (Version 1)
Quarter: 2022Q4

REPORT INFORMATION
  Report Type: Spontaneous
  Country: US (occurrence: US)
  Receive Date: 20221016
  Receipt Date: 20221016
  Transmission Date: 20230113
  Serious: No
  Sender: FDA-Public Use
  Company Number: US-009507513-2210USA003369

PATIENT
  Sex: Female

DRUGS (1)
  1. BELSOMRA [Suspect]
     Active Substance: SUVOREXANT
     Indication: Insomnia
     Dosage: 20 MG / ONCE DAILY
     Route: 048
     Dates: start: 20221010

REACTIONS (5)
  - Sleep disorder [Unknown]
  - Feeling abnormal [Unknown]
  - Abnormal dreams [Unknown]
  - Heart rate increased [Unknown]
  - Incorrect dose administered [Unknown]

NARRATIVE: CASE EVENT DATE: 20221010
